FAERS Safety Report 6228099-0 (Version None)
Quarter: 2009Q2

REPORT INFORMATION
  Report Type: 
  Country: None (occurrence: None)
  Receive Date: 20090612
  Receipt Date: 20090603
  Transmission Date: 20091009
  Serious: Yes (Hospitalization)
  Sender: FDA-Public Use
  Company Number: US-PFIZER INC-2008093238

PATIENT
  Sex: Female
  Weight: 79.365 kg

DRUGS (5)
  1. CELECOXIB [Suspect]
     Indication: OSTEOARTHRITIS
     Dosage: 200 MG, 1X/DAY
     Route: 048
     Dates: start: 20080519, end: 20081026
  2. PREMARIN [Concomitant]
     Indication: HYSTERECTOMY
     Dosage: UNK
     Route: 048
     Dates: start: 20050725
  3. WELCHOL [Concomitant]
     Indication: HYPERLIPIDAEMIA
     Dosage: UNK
     Route: 048
     Dates: start: 20080515
  4. METOPROLOL [Concomitant]
     Indication: ARRHYTHMIA
     Dosage: UNK
     Route: 048
     Dates: start: 20080523
  5. OMEPRAZOLE [Concomitant]
     Indication: GASTROOESOPHAGEAL REFLUX DISEASE
     Dosage: UNK
     Route: 048
     Dates: start: 20080115

REACTIONS (1)
  - OSTEOARTHRITIS [None]
